FAERS Safety Report 10463863 (Version 1)
Quarter: 2014Q3

REPORT INFORMATION
  Report Type: Spontaneous
  Country: US (occurrence: None)
  Receive Date: 20140918
  Receipt Date: 20140918
  Transmission Date: 20150326
  Serious: Yes (Other)
  Sender: FDA-Public Use
  Company Number: None

PATIENT
  Age: 42 Year
  Sex: Female
  Weight: 94.8 kg

DRUGS (3)
  1. OXYDODONE [Suspect]
     Active Substance: OXYCODONE
     Indication: FIBROMYALGIA
     Dosage: ONE 4-6 HOURS AS NEED TAKEN BY MOUTH
     Route: 048
     Dates: start: 20140915, end: 20140916
  2. OXYDODONE [Suspect]
     Active Substance: OXYCODONE
     Indication: INTERVERTEBRAL DISC PROTRUSION
     Dosage: ONE 4-6 HOURS AS NEED TAKEN BY MOUTH
     Route: 048
     Dates: start: 20140915, end: 20140916
  3. OXYDODONE [Suspect]
     Active Substance: OXYCODONE
     Indication: OCCIPITAL NEURALGIA
     Dosage: ONE 4-6 HOURS AS NEED TAKEN BY MOUTH
     Route: 048
     Dates: start: 20140915, end: 20140916

REACTIONS (3)
  - Product substitution issue [None]
  - Product quality issue [None]
  - Drug ineffective [None]

NARRATIVE: CASE EVENT DATE: 20140915
